FAERS Safety Report 8241412-8 (Version None)
Quarter: 2012Q1

REPORT INFORMATION
  Report Type: 
  Country: None (occurrence: None)
  Receive Date: 20120328
  Receipt Date: 20120321
  Transmission Date: 20120608
  Serious: Yes (Hospitalization, Other)
  Sender: FDA-Public Use
  Company Number: IL-AMGEN-ISRSP2012017774

PATIENT
  Age: 89 Year
  Sex: Male
  Weight: 53 kg

DRUGS (8)
  1. PROLIA [Suspect]
     Indication: OSTEOPOROSIS
  2. PLAVIX [Concomitant]
     Indication: MYOCARDIAL ISCHAEMIA
     Dosage: 75 MG, UNK
     Route: 048
  3. LIPITOR [Concomitant]
     Indication: HYPERTENSION
     Dosage: 40 MG, UNK
     Route: 048
  4. PROLIA [Suspect]
     Indication: OSTEITIS DEFORMANS
     Dosage: 60 MG, UNK
     Route: 058
     Dates: start: 20111213, end: 20111215
  5. PROSCAR [Concomitant]
     Indication: ATRIAL FIBRILLATION
     Dosage: 200 MG, UNK
     Route: 048
  6. ENALAPRIL MALEATE [Concomitant]
     Indication: HYPERTENSION
     Dosage: 0.25 MG, UNK
     Route: 048
  7. FUROSEMIDE [Concomitant]
     Indication: CARDIAC FAILURE CONGESTIVE
     Dosage: 40 MG, UNK
     Route: 048
  8. LANSOPRAZOLE [Concomitant]
     Indication: GASTRITIS
     Dosage: 15 MG, UNK
     Route: 048

REACTIONS (9)
  - OFF LABEL USE [None]
  - DYSPNOEA [None]
  - HYPOCALCAEMIA [None]
  - OEDEMA PERIPHERAL [None]
  - HYPOGLYCAEMIA [None]
  - HAEMORRHAGE [None]
  - ANAEMIA [None]
  - MELAENA [None]
  - ANGINA PECTORIS [None]
